FAERS Safety Report 23064626 (Version 2)
Quarter: 2024Q3

REPORT INFORMATION
  Report Type: Spontaneous
  Country: FR (occurrence: FR)
  Receive Date: 20231013
  Receipt Date: 20240712
  Transmission Date: 20241016
  Serious: Yes (Other)
  Sender: RANBAXY
  Company Number: FR-SUN PHARMACEUTICAL INDUSTRIES LTD-2023RR-412316

PATIENT
  Age: 29 Year
  Sex: Female
  Weight: 86 kg

DRUGS (2)
  1. MORPHINE [Suspect]
     Active Substance: MORPHINE
     Indication: Pain
     Dosage: 2 MILLIGRAM, UNK
     Route: 040
     Dates: start: 20230609, end: 20230609
  2. ROPIVACAINE HYDROCHLORIDE ANHYDROUS [Suspect]
     Active Substance: ROPIVACAINE HYDROCHLORIDE ANHYDROUS
     Indication: Local anaesthesia
     Dosage: 60 MILLIGRAM, UNK
     Route: 030
     Dates: start: 20230609, end: 20230609

REACTIONS (3)
  - Confusional state [Recovered/Resolved]
  - Malaise [Recovered/Resolved]
  - Muscle twitching [Recovered/Resolved]

NARRATIVE: CASE EVENT DATE: 20230609
